FAERS Safety Report 10248564 (Version 1)
Quarter: 2014Q2

REPORT INFORMATION
  Report Type: Spontaneous
  Country: JP (occurrence: JP)
  Receive Date: 20140620
  Receipt Date: 20140620
  Transmission Date: 20141212
  Serious: Yes (Life-Threatening)
  Sender: FDA-Public Use
  Company Number: JP-ROCHE-1420788

PATIENT
  Age: 61 Year
  Sex: Female

DRUGS (3)
  1. XELODA [Suspect]
     Indication: GASTRIC CANCER RECURRENT
     Route: 048
  2. FU [Suspect]
     Indication: PRODUCT USED FOR UNKNOWN INDICATION
     Dosage: CONTINUOUS ADMINISTRATION
     Route: 065
  3. CISPLATIN [Concomitant]
     Indication: GASTRIC CANCER RECURRENT
     Route: 041

REACTIONS (1)
  - Hepatitis fulminant [Unknown]
